FAERS Safety Report 9537042 (Version 3)
Quarter: 2013Q3

REPORT INFORMATION
  Report Type: Spontaneous
  Country: US (occurrence: US)
  Receive Date: 20130919
  Receipt Date: 20130927
  Transmission Date: 20140515
  Serious: No
  Sender: FDA-Public Use
  Company Number: US-009507513-1309USA008309

PATIENT
  Sex: Female

DRUGS (2)
  1. MIRALAX [Suspect]
     Indication: CONSTIPATION
     Dosage: UNK, UNKNOWN
     Route: 048
     Dates: start: 20130904, end: 20130906
  2. XANAX [Concomitant]
     Indication: PRODUCT USED FOR UNKNOWN INDICATION
     Dosage: UNK, UNKNOWN

REACTIONS (9)
  - Flatulence [Unknown]
  - Gastrointestinal sounds abnormal [Unknown]
  - Asthenia [Unknown]
  - Weight increased [Unknown]
  - Abnormal faeces [Unknown]
  - Nausea [Unknown]
  - Pollakiuria [Unknown]
  - Tongue discolouration [Unknown]
  - Drug ineffective [Unknown]
